FAERS Safety Report 16035628 (Version 3)
Quarter: 2019Q2

REPORT INFORMATION
  Report Type: Spontaneous
  Country: DE (occurrence: DE)
  Receive Date: 20190305
  Receipt Date: 20190607
  Transmission Date: 20190711
  Serious: Yes (Death, Hospitalization, Other)
  Sender: FDA-Public Use
  Company Number: DE-PFIZER INC-2019096723

PATIENT
  Age: 82 Year
  Sex: Male

DRUGS (8)
  1. RAMIPRIL. [Suspect]
     Active Substance: RAMIPRIL
     Indication: HYPERTENSION
     Dosage: 10 MG, DAILY (DAILY DOSE)
     Route: 065
     Dates: start: 20190112
  2. NAPROXEN. [Suspect]
     Active Substance: NAPROXEN
     Indication: ARTHRITIS
     Dosage: 250 MG, UNK
     Route: 065
     Dates: start: 20190128, end: 20190129
  3. TORASEMID [Concomitant]
     Active Substance: TORSEMIDE
     Dosage: 10 MG, Q8H
  4. RAMILICH COMP [Concomitant]
     Active Substance: HYDROCHLOROTHIAZIDE\RAMIPRIL
     Dosage: 1 DF, 1X/DAY
  5. DIGITOXIN [Concomitant]
     Active Substance: DIGITOXIN
     Indication: TACHYCARDIA
     Dosage: 0.07 MG, 1X/DAY
     Route: 065
  6. AMLODIPINE [Concomitant]
     Active Substance: AMLODIPINE BESYLATE
     Dosage: 5 MG, 1X/DAY
  7. XARELTO [Concomitant]
     Active Substance: RIVAROXABAN
     Indication: ATRIAL FIBRILLATION
     Dosage: 15 MG, UNK
     Route: 065
  8. BISOPROLOL [Concomitant]
     Active Substance: BISOPROLOL
     Indication: TACHYCARDIA
     Dosage: 2.5 MG, UNK
     Route: 065
     Dates: start: 20190112

REACTIONS (4)
  - Staphylococcal sepsis [Fatal]
  - Erysipelas [Fatal]
  - Toxic epidermal necrolysis [Fatal]
  - Staphylococcal scalded skin syndrome [Fatal]

NARRATIVE: CASE EVENT DATE: 20190130
